FAERS Safety Report 13927802 (Version 1)
Quarter: 2017Q3

REPORT INFORMATION
  Report Type: Spontaneous
  Country: DE (occurrence: DE)
  Receive Date: 20170901
  Receipt Date: 20170901
  Transmission Date: 20171127
  Serious: Yes (Hospitalization, Other)
  Sender: FDA-Public Use
  Company Number: DE-APOTEX-2017AP017522

PATIENT
  Age: 66 Year

DRUGS (29)
  1. VALGANCICLOVIR. [Concomitant]
     Active Substance: VALGANCICLOVIR
     Dosage: UNK
     Route: 048
     Dates: start: 2012
  2. CIPROFLOXACIN. [Concomitant]
     Active Substance: CIPROFLOXACIN
     Indication: LEUKOCYTURIA
     Dosage: UNK
     Route: 065
     Dates: start: 201210
  3. ACETYLSALICYLIC ACID [Concomitant]
     Active Substance: ASPIRIN
     Indication: PLATELET AGGREGATION INHIBITION
     Dosage: UNK
     Route: 065
     Dates: start: 201210
  4. METAMIZOLE [Concomitant]
     Active Substance: METAMIZOLE
     Indication: CHEST PAIN
     Route: 048
  5. PENTACARINAT [Concomitant]
     Active Substance: PENTAMIDINE ISETHIONATE
     Indication: PROPHYLAXIS
     Route: 065
  6. MYCOPHENOLATMOFETIL CP FILMTABLETTEN [Suspect]
     Active Substance: MYCOPHENOLATE MOFETIL
     Dosage: 1000 MG, UNK
     Route: 065
     Dates: start: 201210
  7. TACROLIMUS. [Suspect]
     Active Substance: TACROLIMUS
     Dosage: UNK, BID
     Route: 065
     Dates: start: 201209
  8. PREDNISOLONE. [Suspect]
     Active Substance: PREDNISOLONE
     Indication: IMMUNOSUPPRESSANT DRUG THERAPY
     Dosage: 20 MG, UNK
     Route: 065
     Dates: start: 201208
  9. IMIPENEM [Concomitant]
     Active Substance: IMIPENEM
     Indication: MYCOBACTERIUM FORTUITUM INFECTION
     Route: 065
  10. MYCOPHENOLATMOFETIL CP FILMTABLETTEN [Suspect]
     Active Substance: MYCOPHENOLATE MOFETIL
     Dosage: 500 MG, TID
     Route: 065
     Dates: start: 201208
  11. PREDNISOLONE. [Suspect]
     Active Substance: PREDNISOLONE
     Dosage: 10 UNK, DAILY
     Route: 065
     Dates: start: 201209
  12. VALGANCICLOVIR. [Concomitant]
     Active Substance: VALGANCICLOVIR
     Indication: CYTOMEGALOVIRUS VIRAEMIA
     Dosage: UNK
     Route: 061
     Dates: start: 201208
  13. PENTAMIDINE [Concomitant]
     Active Substance: PENTAMIDINE
     Indication: ANTIFUNGAL PROPHYLAXIS
     Dosage: UNK
     Route: 050
     Dates: start: 201209
  14. CLARITHROMYCIN. [Concomitant]
     Active Substance: CLARITHROMYCIN
     Indication: CYTOMEGALOVIRUS VIRAEMIA
     Route: 065
  15. AMPICILLIN [Concomitant]
     Active Substance: AMPICILLIN
     Indication: UROGENITAL INFECTION BACTERIAL
     Dosage: UNK
     Route: 065
     Dates: start: 201208
  16. ACYCLOVIR                          /00587301/ [Concomitant]
     Active Substance: ACYCLOVIR
     Indication: CYTOMEGALOVIRUS VIRAEMIA
     Dosage: UNK
     Route: 061
     Dates: start: 201208
  17. CEFTRIAXONE. [Concomitant]
     Active Substance: CEFTRIAXONE
     Indication: CYTOMEGALOVIRUS VIRAEMIA
     Route: 065
  18. TACROLIMUS. [Suspect]
     Active Substance: TACROLIMUS
     Dosage: 7 MG, UNK
     Route: 065
  19. ISONIAZID. [Concomitant]
     Active Substance: ISONIAZID
     Indication: TUBERCULOSIS
     Dosage: UNK
     Route: 065
     Dates: start: 201208
  20. TRIMETHOPRIM SULFAMETHOXAZOLE [Concomitant]
     Active Substance: SULFAMETHOXAZOLE\TRIMETHOPRIM
     Dosage: UNK
     Route: 065
     Dates: end: 201209
  21. TACROLIMUS. [Suspect]
     Active Substance: TACROLIMUS
     Indication: IMMUNOSUPPRESSANT DRUG THERAPY
     Dosage: UNK
     Route: 065
     Dates: start: 201208
  22. TACROLIMUS. [Suspect]
     Active Substance: TACROLIMUS
     Dosage: 7.5 MG, UNK
     Route: 065
     Dates: start: 201208
  23. PREDNISOLONE. [Suspect]
     Active Substance: PREDNISOLONE
     Dosage: 15 UNK, UNK
     Route: 065
  24. TACROLIMUS. [Suspect]
     Active Substance: TACROLIMUS
     Dosage: 5.5 MG, UNK
     Route: 065
     Dates: start: 201210
  25. PREDNISOLONE. [Suspect]
     Active Substance: PREDNISOLONE
     Dosage: 10 MG, UNK
     Route: 065
     Dates: start: 201210
  26. THYMOGLOBULIN [Concomitant]
     Active Substance: LAPINE T-LYMPHOCYTE IMMUNE GLOBULIN
     Indication: PRODUCT USED FOR UNKNOWN INDICATION
     Dosage: UNK
     Route: 065
     Dates: start: 201208
  27. MYCOPHENOLATMOFETIL CP FILMTABLETTEN [Suspect]
     Active Substance: MYCOPHENOLATE MOFETIL
     Indication: IMMUNOSUPPRESSANT DRUG THERAPY
     Dosage: UNK
     Route: 065
     Dates: start: 201208
  28. ACETAMINOPHEN. [Concomitant]
     Active Substance: ACETAMINOPHEN
     Indication: CHEST PAIN
     Route: 048
  29. TORSEMIDE. [Concomitant]
     Active Substance: TORSEMIDE
     Indication: PRODUCT USED FOR UNKNOWN INDICATION
     Dosage: 40 MG, UNK
     Route: 065

REACTIONS (1)
  - Nocardiosis [Recovered/Resolved]
